FAERS Safety Report 7932847-9 (Version None)
Quarter: 2011Q4

REPORT INFORMATION
  Report Type: 
  Country: None (occurrence: None)
  Receive Date: 20111122
  Receipt Date: 20111116
  Transmission Date: 20120403
  Serious: Yes (Death, Life-Threatening, Hospitalization)
  Sender: FDA-Public Use
  Company Number: PL-PFIZER INC-2007037674

PATIENT
  Age: 63 Year
  Sex: Male
  Weight: 80 kg

DRUGS (12)
  1. FRAXIPARINE [Concomitant]
     Route: 058
     Dates: start: 20070412
  2. OMEPRAZOLE [Concomitant]
     Route: 048
     Dates: start: 20070215
  3. DICLOBERL - SLOW RELEASE [Concomitant]
     Route: 048
     Dates: start: 20070426
  4. FORMOTEROL FUMARATE [Concomitant]
     Dosage: OCCASIONALLY
  5. LEVOTHYROXINE SODIUM [Concomitant]
     Route: 048
     Dates: start: 20070412
  6. METHIMAZOLE [Concomitant]
     Route: 048
     Dates: start: 20070131, end: 20070412
  7. SUNITINIB MALATE [Suspect]
     Indication: METASTATIC RENAL CELL CARCINOMA
     Dosage: 50 MG, 1X/DAY
     Route: 048
     Dates: start: 20070119, end: 20070326
  8. LISINOPRIL [Concomitant]
     Route: 048
     Dates: start: 20000101
  9. METOCARD [Concomitant]
     Route: 048
     Dates: start: 20070326
  10. DEXAVEN [Concomitant]
     Route: 042
     Dates: start: 20070426, end: 20070430
  11. SUNITINIB MALATE [Suspect]
     Dosage: 37.5 MG, UNK
     Route: 048
     Dates: start: 20070412, end: 20070426
  12. METOCLOPRAMIDE [Concomitant]
     Route: 048
     Dates: start: 20070215

REACTIONS (5)
  - RENAL FAILURE [None]
  - HYPERCALCAEMIA [None]
  - OEDEMA GENITAL [None]
  - URINARY RETENTION [None]
  - GENERAL PHYSICAL HEALTH DETERIORATION [None]
